FAERS Safety Report 6989454-4 (Version None)
Quarter: 2010Q3

REPORT INFORMATION
  Report Type: 
  Country: None (occurrence: None)
  Receive Date: 20100916
  Receipt Date: 20091215
  Transmission Date: 20110219
  Serious: Yes (Hospitalization)
  Sender: FDA-Public Use
  Company Number: GB-PFIZER INC-2009310165

PATIENT
  Age: 68 Year
  Sex: Female
  Weight: 92 kg

DRUGS (5)
  1. LYRICA [Suspect]
     Indication: BACK PAIN
     Dosage: 150 MG, UNK
     Route: 048
     Dates: start: 20091110, end: 20091110
  2. BACLOFEN [Concomitant]
     Indication: MUSCLE SPASTICITY
     Dosage: 50 MG, UNK
     Route: 048
     Dates: start: 20020101
  3. PERINDOPRIL [Concomitant]
     Indication: HYPERTENSION
     Dosage: 2 MG, UNK
     Route: 048
     Dates: start: 20040101
  4. PIZOTIFEN [Concomitant]
     Indication: MIGRAINE
     Dosage: 1.5 MG, UNK
     Route: 048
     Dates: start: 20010101
  5. WARFARIN [Concomitant]
     Indication: ANTIPHOSPHOLIPID SYNDROME
     Dosage: 3 MG, UNK
     Route: 048
     Dates: start: 19980101

REACTIONS (3)
  - LOSS OF CONSCIOUSNESS [None]
  - SPEECH DISORDER [None]
  - VISION BLURRED [None]
